FAERS Safety Report 5397133-2 (Version None)
Quarter: 2007Q3

REPORT INFORMATION
  Report Type: 
  Country: None (occurrence: None)
  Receive Date: 20070725
  Receipt Date: 20070713
  Transmission Date: 20080115
  Serious: Yes (Disabling)
  Sender: FDA-Public Use
  Company Number: AU-PFIZER INC-2007058735

PATIENT
  Sex: Male

DRUGS (5)
  1. NORVASC [Suspect]
     Indication: ESSENTIAL HYPERTENSION
     Dosage: TEXT:1.25 OR 2.5 OR 5 MG
     Route: 048
  2. LOSEC [Concomitant]
     Route: 048
  3. PULMICORT [Concomitant]
     Route: 055
  4. BRICANYL [Concomitant]
     Route: 055
  5. VITAMIN CAP [Concomitant]
     Route: 048

REACTIONS (6)
  - CHILLS [None]
  - DRUG INEFFECTIVE [None]
  - EXERCISE TOLERANCE DECREASED [None]
  - FEELING COLD [None]
  - FEELING HOT [None]
  - FLUSHING [None]
